FAERS Safety Report 5743516-8 (Version None)
Quarter: 2008Q2

REPORT INFORMATION
  Report Type: 
  Country: None (occurrence: None)
  Receive Date: 20080520
  Receipt Date: 20080509
  Transmission Date: 20081010
  Serious: Yes (Hospitalization, Other)
  Sender: FDA-Public Use
  Company Number: US-ELI_LILLY_AND_COMPANY-US200803003497

PATIENT
  Sex: Female
  Weight: 58.957 kg

DRUGS (1)
  1. ZYPREXA [Suspect]
     Dates: start: 19971205, end: 20061027

REACTIONS (6)
  - ANAEMIA [None]
  - HYPERLIPIDAEMIA [None]
  - HYPERTENSION [None]
  - RENAL FAILURE [None]
  - TYPE 2 DIABETES MELLITUS [None]
  - WITHDRAWAL SYNDROME [None]
